FAERS Safety Report 5515773-4 (Version None)
Quarter: 2007Q4

REPORT INFORMATION
  Report Type: 
  Country: None (occurrence: None)
  Receive Date: 20071114
  Receipt Date: 20071106
  Transmission Date: 20080405
  Serious: Yes (Other)
  Sender: FDA-Public Use
  Company Number: US-BAYER-200712503BWH

PATIENT
  Age: 87 Year
  Sex: Female

DRUGS (7)
  1. AVELOX [Suspect]
     Indication: PROPHYLAXIS
     Dosage: AS USED: 400 MG  UNIT DOSE: 400 MG
     Route: 048
  2. AVELOX [Suspect]
     Dosage: TOTAL DAILY DOSE: 400 MG  UNIT DOSE: 400 MG
     Route: 048
     Dates: start: 20070521, end: 20070523
  3. AVELOX [Suspect]
     Dosage: TOTAL DAILY DOSE: 400 MG  UNIT DOSE: 400 MG
     Route: 048
     Dates: start: 20070726, end: 20070726
  4. ZYMAR [Concomitant]
     Route: 047
     Dates: start: 20070724
  5. LISINOPRIL [Concomitant]
  6. ZOCOR [Concomitant]
  7. VIGAMOX [Concomitant]
     Route: 047

REACTIONS (6)
  - CHILLS [None]
  - FALL [None]
  - LOSS OF CONSCIOUSNESS [None]
  - NAUSEA [None]
  - PRURITUS GENERALISED [None]
  - VOMITING [None]
